FAERS Safety Report 5856655-8 (Version None)
Quarter: 2008Q3

REPORT INFORMATION
  Report Type: 
  Country: None (occurrence: None)
  Receive Date: 20080825
  Receipt Date: 20080717
  Transmission Date: 20090109
  Serious: No
  Sender: FDA-Public Use
  Company Number: BR-AVENTIS-200814746GDDC

PATIENT
  Sex: Female

DRUGS (1)
  1. LEFLUNOMIDE [Suspect]
     Dosage: DOSE: UNK
     Dates: end: 20070101

REACTIONS (1)
  - DRUG EXPOSURE DURING PREGNANCY [None]
